FAERS Safety Report 5939542-6 (Version None)
Quarter: 2008Q4

REPORT INFORMATION
  Report Type: 
  Country: None (occurrence: None)
  Receive Date: 20081029
  Receipt Date: 20081016
  Transmission Date: 20090506
  Serious: Yes (Other)
  Sender: FDA-Public Use
  Company Number: 08P-229-0482519-00

PATIENT

DRUGS (2)
  1. SYNAGIS [Suspect]
     Indication: PROPHYLAXIS
     Dates: start: 20081015
  2. SYNAGIS [Suspect]
     Indication: RESPIRATORY SYNCYTIAL VIRUS INFECTION
     Dates: start: 20081015

REACTIONS (3)
  - DIARRHOEA [None]
  - FONTANELLE BULGING [None]
  - IRRITABILITY [None]
